FAERS Safety Report 4499047-9 (Version None)
Quarter: 2004Q4

REPORT INFORMATION
  Report Type: 
  Country: None (occurrence: None)
  Receive Date: 20041110
  Receipt Date: 20041110
  Transmission Date: 20050328
  Serious: Yes (Death)
  Sender: FDA-Public Use
  Company Number: None

PATIENT
  Age: 72 Year
  Sex: Female
  Weight: 77.5651 kg

DRUGS (10)
  1. REMICADE [Suspect]
     Indication: RHEUMATOID ARTHRITIS
     Dosage: 300 MG IV
     Route: 042
     Dates: start: 20010815, end: 20010815
  2. VIOXX [Concomitant]
  3. PREDNISONE [Concomitant]
  4. DETROL [Concomitant]
  5. LEVOXYL [Concomitant]
  6. IMIPRAM TAB [Concomitant]
  7. PRILOSEC [Concomitant]
  8. ZESTRIL [Concomitant]
  9. HYDROCHLOROTHIAZIDE [Concomitant]
  10. ASPIRIN [Concomitant]

REACTIONS (1)
  - PNEUMOCYSTIS CARINII PNEUMONIA [None]
